FAERS Safety Report 4553629-4 (Version None)
Quarter: 2004Q4

REPORT INFORMATION
  Report Type: 
  Country: None (occurrence: None)
  Receive Date: 20041227
  Receipt Date: 20041018
  Transmission Date: 20050328
  Serious: No
  Sender: FDA-Public Use
  Company Number: 04P-163-0277878-00

PATIENT
  Age: 65 Year
  Sex: Female
  Weight: 81.6475 kg

DRUGS (8)
  1. HUMIRA [Suspect]
     Indication: RHEUMATOID ARTHRITIS
     Dosage: 40 MG, 1 IN 2 WK, SUBCUTANEOUS
     Route: 058
     Dates: start: 20040915
  2. RAMIPRIL [Concomitant]
  3. TAZTIA XT [Concomitant]
  4. PRAVASTATIN SODIUM [Concomitant]
  5. LEVOTHYROXIN SODIUM [Concomitant]
  6. ETODOLAC [Concomitant]
  7. ZETIA [Concomitant]
  8. CETIRIZINE HCL [Concomitant]

REACTIONS (1)
  - LICHEN PLANUS [None]
